FAERS Safety Report 9508762 (Version 1)
Quarter: 2013Q3

REPORT INFORMATION
  Report Type: Spontaneous
  Country: US (occurrence: US)
  Receive Date: 20130909
  Receipt Date: 20130909
  Transmission Date: 20140515
  Serious: No
  Sender: FDA-Public Use
  Company Number: US-BRISTOL-MYERS SQUIBB COMPANY-19114362

PATIENT
  Age: 28 Year
  Sex: Male
  Weight: 105.67 kg

DRUGS (2)
  1. ABILIFY [Suspect]
     Indication: MOOD SWINGS
     Dosage: HALF OF A PILL DAILY FOR THE FIRST 3 OR 4 DAYS, AND THEN TO START TAKING A FULL PILL
  2. CELEXA [Concomitant]

REACTIONS (5)
  - Fatigue [Unknown]
  - Somnolence [Unknown]
  - Abnormal behaviour [Unknown]
  - Insomnia [Unknown]
  - Restlessness [Unknown]
